FAERS Safety Report 16864260 (Version 2)
Quarter: 2019Q3

REPORT INFORMATION
  Report Type: Spontaneous
  Country: CN (occurrence: CN)
  Receive Date: 20190927
  Receipt Date: 20190928
  Transmission Date: 20191005
  Serious: Yes (Life-Threatening, Hospitalization)
  Sender: FDA-Public Use
  Company Number: PHHY2019CN224973

PATIENT
  Age: 34 Year
  Sex: Male

DRUGS (2)
  1. TEGRETOL [Suspect]
     Active Substance: CARBAMAZEPINE
     Indication: TRIGEMINAL NEURALGIA
     Dosage: 1 DF, QD
     Route: 048
     Dates: start: 20190808
  2. TEGRETOL [Suspect]
     Active Substance: CARBAMAZEPINE
     Dosage: 2 DF, QD
     Route: 048

REACTIONS (8)
  - Mouth swelling [Recovered/Resolved]
  - Drug eruption [Recovered/Resolved]
  - Herpes virus infection [Unknown]
  - Product use issue [Unknown]
  - Mouth ulceration [Unknown]
  - Pain [Unknown]
  - Hypersensitivity [Unknown]
  - Ulcer [Unknown]
